FAERS Safety Report 17722833 (Version 1)
Quarter: 2020Q2

REPORT INFORMATION
  Report Type: Spontaneous
  Country: US (occurrence: US)
  Receive Date: 20200428
  Receipt Date: 20200428
  Transmission Date: 20200714
  Serious: No
  Sender: FDA-Public Use
  Company Number: None

PATIENT
  Age: 86 Year
  Sex: Male
  Weight: 76.2 kg

DRUGS (1)
  1. CHLORTHALIDONE (CHLORTHALIDONE 25MG TAB) [Suspect]
     Active Substance: CHLORTHALIDONE
     Indication: HYPERTENSION
     Route: 048
     Dates: start: 20190628, end: 20200224

REACTIONS (1)
  - Alopecia [None]
